FAERS Safety Report 7436630-2 (Version None)
Quarter: 2011Q2

REPORT INFORMATION
  Report Type: 
  Country: None (occurrence: None)
  Receive Date: 20110426
  Receipt Date: 20110412
  Transmission Date: 20111010
  Serious: Yes (Hospitalization)
  Sender: FDA-Public Use
  Company Number: US-JNJFOC-20110405858

PATIENT
  Sex: Female
  Weight: 52.7 kg

DRUGS (8)
  1. PRILOSEC [Concomitant]
  2. TRAMADOL HCL [Concomitant]
  3. CLINDAMYCIN [Concomitant]
  4. REMICADE [Suspect]
     Route: 042
  5. REMICADE [Suspect]
     Indication: CROHN'S DISEASE
     Route: 042
  6. FERROUS SULFATE TAB [Concomitant]
  7. SEPTRA [Concomitant]
  8. PREDNISONE [Concomitant]

REACTIONS (1)
  - PELVIC ABSCESS [None]
